FAERS Safety Report 5312847-8 (Version None)
Quarter: 2007Q1

REPORT INFORMATION
  Report Type: 
  Country: None (occurrence: None)
  Receive Date: 20070201
  Receipt Date: 20061208
  Transmission Date: 20070707
  Serious: No
  Sender: FDA-Public Use
  Company Number: 259160

PATIENT
  Age: 60 Year
  Sex: Male
  Weight: 152.4 kg

DRUGS (2)
  1. NOVOLOG [Suspect]
     Indication: DIABETES MELLITUS INSULIN-DEPENDENT
     Dosage: 28 IU, TID, SUBCUTANEOUS
     Route: 058
     Dates: start: 20060601
  2. LEVEMIR [Suspect]
     Indication: DIABETES MELLITUS INSULIN-DEPENDENT
     Dosage: 50 IU, BID, SUBCUTANEOUS
     Route: 058
     Dates: start: 20061001

REACTIONS (1)
  - INJECTION SITE MASS [None]
